FAERS Safety Report 6460515-1 (Version None)
Quarter: 2009Q4

REPORT INFORMATION
  Report Type: 
  Country: None (occurrence: None)
  Receive Date: 20091130
  Receipt Date: 20091117
  Transmission Date: 20100525
  Serious: Yes (Other)
  Sender: FDA-Public Use
  Company Number: FR-JNJFOC-20091105027

PATIENT
  Sex: Female

DRUGS (17)
  1. IMODIUM [Suspect]
     Route: 048
     Dates: start: 20090704, end: 20090706
  2. IMODIUM [Suspect]
     Indication: CHOLELITHIASIS
     Route: 048
     Dates: start: 20090704, end: 20090706
  3. TAVANIC [Suspect]
     Indication: DRUG USE FOR UNKNOWN INDICATION
     Dates: start: 20090706
  4. JOSAMYCINE [Suspect]
     Indication: INFLUENZA
     Dates: start: 20090828
  5. IBUPROFENE [Suspect]
     Indication: INFLUENZA
     Dates: start: 20090828
  6. DOLIPRANE [Suspect]
     Indication: INFLUENZA
     Dates: start: 20090828
  7. GUAIFENESIN [Suspect]
     Indication: INFLUENZA
     Dates: start: 20090828
  8. AGRAM [Suspect]
     Indication: CHOLELITHIASIS
     Dates: start: 20090704
  9. FLAGYL [Suspect]
     Indication: DRUG USE FOR UNKNOWN INDICATION
     Dates: start: 20090706
  10. BI-PROFENID [Suspect]
     Indication: DRUG USE FOR UNKNOWN INDICATION
     Dates: start: 20090706
  11. IXPRIM [Suspect]
     Indication: DRUG USE FOR UNKNOWN INDICATION
     Dates: start: 20090704
  12. SPASFON [Suspect]
     Indication: DRUG USE FOR UNKNOWN INDICATION
     Dates: start: 20090704, end: 20090706
  13. VOGALENE [Suspect]
     Indication: DRUG USE FOR UNKNOWN INDICATION
     Dates: start: 20090704, end: 20090706
  14. ACUPAN [Suspect]
     Indication: CHOLELITHIASIS
     Dates: start: 20090704
  15. FORLAX [Suspect]
     Indication: DRUG USE FOR UNKNOWN INDICATION
     Dates: start: 20090715
  16. ANTI-INFLAMMATORY DRUG [Concomitant]
     Indication: HAEMORRHOIDS
  17. HEMORRHOIDAL MEDICATION [Concomitant]
     Indication: HAEMORRHOIDS
     Dates: start: 20090831

REACTIONS (2)
  - APHTHOUS STOMATITIS [None]
  - STEVENS-JOHNSON SYNDROME [None]
